FAERS Safety Report 7796879-6 (Version None)
Quarter: 2011Q4

REPORT INFORMATION
  Report Type: 
  Country: None (occurrence: None)
  Receive Date: 20111003
  Receipt Date: 20110914
  Transmission Date: 20120403
  Serious: Yes (Hospitalization, Other)
  Sender: FDA-Public Use
  Company Number: US-ACCORD-006870

PATIENT
  Age: 17 Year
  Sex: Female

DRUGS (2)
  1. METHOTREXATE [Suspect]
     Indication: CHORIOCARCINOMA
  2. ETOPOSIDE [Suspect]
     Indication: CHORIOCARCINOMA

REACTIONS (14)
  - VOMITING [None]
  - BLOOD PHOSPHORUS INCREASED [None]
  - UPPER GASTROINTESTINAL HAEMORRHAGE [None]
  - NAUSEA [None]
  - HYPOVOLAEMIA [None]
  - DEHYDRATION [None]
  - RENAL FAILURE ACUTE [None]
  - DEEP VEIN THROMBOSIS [None]
  - CARDIAC FAILURE CONGESTIVE [None]
  - OESOPHAGITIS [None]
  - TUMOUR LYSIS SYNDROME [None]
  - BLOOD POTASSIUM INCREASED [None]
  - FUNGAEMIA [None]
  - PULMONARY OEDEMA [None]
